FAERS Safety Report 9468331 (Version 1)
Quarter: 2013Q3

REPORT INFORMATION
  Report Type: Spontaneous
  Country: US (occurrence: US)
  Receive Date: 20130821
  Receipt Date: 20130821
  Transmission Date: 20140515
  Serious: No
  Sender: FDA-Public Use
  Company Number: US-PFIZER INC-2013240614

PATIENT
  Age: 60 Year
  Sex: Female

DRUGS (3)
  1. ALAVERT [Suspect]
     Indication: HYPERSENSITIVITY
     Dosage: UNK
     Route: 048
  2. LORTAB [Suspect]
     Indication: HYPERSENSITIVITY
     Dosage: UNK
  3. CLARITIN [Suspect]
     Indication: HYPERSENSITIVITY
     Dosage: UNK

REACTIONS (5)
  - Poor quality drug administered [Unknown]
  - Drug ineffective [Unknown]
  - Eye disorder [Unknown]
  - Feeling jittery [Unknown]
  - Product packaging issue [Unknown]
